FAERS Safety Report 14338605 (Version 1)
Quarter: 2017Q4

REPORT INFORMATION
  Report Type: Spontaneous
  Country: CA (occurrence: CA)
  Receive Date: 20171229
  Receipt Date: 20171229
  Transmission Date: 20180321
  Serious: Yes (Other)
  Sender: FDA-Public Use
  Company Number: CA-PFIZER INC-3038602

PATIENT
  Age: 45 Year
  Sex: Male

DRUGS (4)
  1. DILAUDID [Suspect]
     Active Substance: HYDROMORPHONE HYDROCHLORIDE
     Dosage: UNK
     Route: 042
  2. MORPHINE SULFATE. [Suspect]
     Active Substance: MORPHINE SULFATE
     Dosage: UNK
     Route: 042
  3. COCAINE [Suspect]
     Active Substance: COCAINE
     Dosage: UNK
     Route: 055
  4. HEROIN [Suspect]
     Active Substance: DIAMORPHINE
     Dosage: UNK
     Route: 065

REACTIONS (8)
  - Glassy eyes [Unknown]
  - Malaise [Unknown]
  - Substance abuse [Unknown]
  - Limb injury [Unknown]
  - Blister [Unknown]
  - Euphoric mood [Unknown]
  - Substance dependence [Unknown]
  - Homeless [Unknown]
